FAERS Safety Report 24927162 (Version 3)
Quarter: 2025Q2

REPORT INFORMATION
  Report Type: Spontaneous
  Country: JP (occurrence: JP)
  Receive Date: 20250205
  Receipt Date: 20250603
  Transmission Date: 20250716
  Serious: Yes (Death, Hospitalization)
  Sender: AMGEN
  Company Number: JP-KISSEI-TV20250077_P_1

PATIENT
  Age: 72 Year
  Sex: Female

DRUGS (7)
  1. TAVNEOS [Suspect]
     Active Substance: AVACOPAN
     Indication: Microscopic polyangiitis
     Dosage: 10 MG, BID
     Route: 048
     Dates: start: 20241125, end: 20250106
  2. PREDONINE [Concomitant]
     Active Substance: PREDNISOLONE
     Indication: Microscopic polyangiitis
     Dosage: 6 MG, QD
     Route: 065
     Dates: start: 20241125, end: 20250214
  3. PREDONINE [Concomitant]
     Active Substance: PREDNISOLONE
     Dosage: 10 MG, QD
     Route: 040
     Dates: end: 20250120
  4. PREDONINE [Concomitant]
     Active Substance: PREDNISOLONE
     Dosage: 26 MG, QD
     Route: 065
     Dates: start: 20250215, end: 20250227
  5. PREDONINE [Concomitant]
     Active Substance: PREDNISOLONE
     Dosage: 21 MG, QD
     Route: 065
     Dates: start: 20250228, end: 2025
  6. VONOPRAZAN FUMARATE [Concomitant]
     Active Substance: VONOPRAZAN FUMARATE
     Route: 048
  7. SODIUM BICARBONATE [Concomitant]
     Active Substance: SODIUM BICARBONATE
     Route: 065

REACTIONS (6)
  - Drug-induced liver injury [Fatal]
  - Pneumocystis jirovecii pneumonia [Fatal]
  - Hypophagia [Unknown]
  - Anorexia nervosa [Unknown]
  - Vomiting [Unknown]
  - Intentional underdose [Unknown]

NARRATIVE: CASE EVENT DATE: 20241125
